FAERS Safety Report 8773642 (Version 1)
Quarter: 2012Q4

REPORT INFORMATION
  Report Type: 
  Country: BR (occurrence: BR)
  Receive Date: 20120907
  Receipt Date: 20120907
  Transmission Date: 20130627
  Serious: Yes (Other)
  Sender: FDA-Public Use
  Company Number: PHHY2012BR076621

PATIENT

DRUGS (1)
  1. DIOVAN AMLO FIX [Suspect]
     Dosage: UNK UKN, UNK

REACTIONS (1)
  - Arterial stenosis [Unknown]
